FAERS Safety Report 6552365-2 (Version None)
Quarter: 2010Q1

REPORT INFORMATION
  Report Type: 
  Country: None (occurrence: None)
  Receive Date: 20100126
  Receipt Date: 20100122
  Transmission Date: 20100710
  Serious: Yes (Death, Hospitalization)
  Sender: FDA-Public Use
  Company Number: NL-B.I. PHARMACEUTICALS,INC./RIDGEFIELD-2010-NL-00035NL

PATIENT
  Sex: Male
  Weight: 67.8 kg

DRUGS (7)
  1. PERSANTIN [Suspect]
     Indication: HYPERTENSION
     Dosage: 200 MG
     Route: 048
     Dates: start: 20070301, end: 20091029
  2. SUTENT [Suspect]
     Indication: SMALL CELL LUNG CANCER STAGE UNSPECIFIED
     Dosage: 150 MG
     Route: 048
     Dates: start: 20090916, end: 20090916
  3. SUTENT [Suspect]
     Dosage: 37.5 MG
     Route: 048
     Dates: start: 20090916, end: 20091114
  4. ASPIRIN [Suspect]
     Indication: PROPHYLAXIS
     Dosage: 80 MG
     Route: 048
     Dates: start: 20070301, end: 20091029
  5. SIMVASTATIN [Concomitant]
     Indication: PROPHYLAXIS
     Dates: start: 20070301, end: 20091115
  6. METOPROLOL [Concomitant]
     Indication: HYPERTENSION
     Dosage: 50 MG
     Dates: start: 20070301, end: 20091115
  7. NUTRIDRINK [Concomitant]
     Indication: SUPPLEMENTATION THERAPY
     Dosage: 400 ML
     Route: 048
     Dates: start: 20090601, end: 20091115

REACTIONS (4)
  - HAEMOPTYSIS [None]
  - MEDICATION ERROR [None]
  - PNEUMONIA [None]
  - PULMONARY HAEMORRHAGE [None]
